FAERS Safety Report 9165856 (Version 1)
Quarter: 2013Q1

REPORT INFORMATION
  Report Type: Spontaneous
  Country: US (occurrence: None)
  Receive Date: 20130228
  Receipt Date: 20130228
  Transmission Date: 20140127
  Serious: Yes (Hospitalization)
  Sender: FDA-Public Use
  Company Number: US - 010962

PATIENT
  Age: 53 Year
  Sex: Female
  Weight: 64.41 kg

DRUGS (1)
  1. LYSTEDA (650MG, 650 MG, 650 MG) [Suspect]
     Indication: MENORRHAGIA
     Route: 048
     Dates: start: 20111219, end: 20111223

REACTIONS (1)
  - Deep vein thrombosis [None]
